FAERS Safety Report 5086219-8 (Version None)
Quarter: 2006Q3

REPORT INFORMATION
  Report Type: 
  Country: None (occurrence: None)
  Receive Date: 20060823
  Receipt Date: 20060817
  Transmission Date: 20061208
  Serious: Yes (Other)
  Sender: FDA-Public Use
  Company Number: AT-JNJFOC-20060803978

PATIENT
  Age: 39 Year
  Sex: Female
  Weight: 100 kg

DRUGS (3)
  1. REMICADE [Suspect]
     Indication: CROHN'S DISEASE
     Route: 042
  2. METHOTREXATE [Concomitant]
     Route: 048
  3. CORTISONE ACETATE [Concomitant]
     Route: 048

REACTIONS (1)
  - PULMONARY SARCOIDOSIS [None]
